FAERS Safety Report 18323179 (Version 1)
Quarter: 2020Q3

REPORT INFORMATION
  Report Type: Spontaneous
  Country: US (occurrence: US)
  Receive Date: 20200925
  Receipt Date: 20200925
  Transmission Date: 20201103
  Serious: No
  Sender: FDA-Public Use
  Company Number: None

PATIENT
  Age: 32 Year
  Sex: Female

DRUGS (2)
  1. RHOPHYLAC [Suspect]
     Active Substance: HUMAN RHO(D) IMMUNE GLOBULIN
     Dosage: ?          OTHER ROUTE:NEEDLE  AND SYRINE?
  2. PRENATAL VITAMIN [Concomitant]
     Active Substance: VITAMINS

REACTIONS (5)
  - Rash pruritic [None]
  - Exposure during pregnancy [None]
  - Abortion spontaneous [None]
  - Rash papular [None]
  - Skin irritation [None]

NARRATIVE: CASE EVENT DATE: 20200118
